FAERS Safety Report 4416450-3 (Version None)
Quarter: 2004Q3

REPORT INFORMATION
  Report Type: 
  Country: None (occurrence: None)
  Receive Date: 20040802
  Receipt Date: 20040727
  Transmission Date: 20050211
  Serious: Yes (Life-Threatening)
  Sender: FDA-Public Use
  Company Number: 2004AP03876

PATIENT
  Sex: Female

DRUGS (1)
  1. IRESSA [Suspect]
     Dosage: 250 MG DAILY PO
     Route: 048

REACTIONS (1)
  - LEUKAEMIA [None]
